FAERS Safety Report 9220727 (Version 1)
Quarter: 2013Q2

REPORT INFORMATION
  Report Type: Spontaneous
  Country: GB (occurrence: GB)
  Receive Date: 20130409
  Receipt Date: 20130409
  Transmission Date: 20140414
  Serious: Yes (Hospitalization)
  Sender: FDA-Public Use
  Company Number: GB-TEVA-396186ISR

PATIENT
  Age: 86 Year
  Sex: Female
  Weight: 56.3 kg

DRUGS (7)
  1. NAPROXEN [Suspect]
     Indication: OSTEOARTHRITIS
     Dosage: 500 MILLIGRAM DAILY;
     Route: 048
     Dates: start: 20110622, end: 20130314
  2. CITALOPRAM [Concomitant]
  3. PARACETAMOL [Concomitant]
  4. BENDROFLUMETHIAZIDE [Concomitant]
  5. NIFEDIPINE [Concomitant]
  6. AMLODIPINE [Concomitant]
  7. CALCICHEW D3 [Concomitant]

REACTIONS (2)
  - Gastric haemorrhage [Recovered/Resolved with Sequelae]
  - Gastric cancer [Not Recovered/Not Resolved]
